FAERS Safety Report 15926742 (Version 1)
Quarter: 2019Q1

REPORT INFORMATION
  Report Type: Spontaneous
  Country: US (occurrence: US)
  Receive Date: 20190206
  Receipt Date: 20190206
  Transmission Date: 20190417
  Serious: Yes (Other)
  Sender: FDA-Public Use
  Company Number: None

PATIENT
  Age: 66 Year
  Sex: Female
  Weight: 80.1 kg

DRUGS (23)
  1. XOPENEX [Concomitant]
     Active Substance: LEVALBUTEROL HYDROCHLORIDE
  2. VITAMIN K [Concomitant]
     Active Substance: PHYTONADIONE
  3. VITAMIN B12 [Concomitant]
     Active Substance: CYANOCOBALAMIN
  4. PROBIOTICS [Concomitant]
     Active Substance: PROBIOTICS NOS
  5. DUPIXENT [Concomitant]
     Active Substance: DUPILUMAB
  6. IPRATROPIUM [Concomitant]
     Active Substance: IPRATROPIUM
  7. FUROSEMIDE. [Concomitant]
     Active Substance: FUROSEMIDE
  8. WOMEM^S MUTIVITAMIN [Concomitant]
  9. OMEGA 3 [Concomitant]
     Active Substance: OMEGA-3 FATTY ACIDS
  10. CALCIUM [Concomitant]
     Active Substance: CALCIUM
  11. NUCALA [Suspect]
     Active Substance: MEPOLIZUMAB
     Indication: ASTHMA
     Dosage: ?          QUANTITY:1 INJECTION(S);OTHER FREQUENCY:EVERY 4 WEEKS;?
     Route: 058
     Dates: start: 20171109, end: 20181109
  12. ASMANEX [Concomitant]
     Active Substance: MOMETASONE FUROATE
  13. LEVALBUTERAL [Concomitant]
  14. ASTEPRO [Concomitant]
     Active Substance: AZELASTINE HYDROCHLORIDE
  15. BIOTIN [Concomitant]
     Active Substance: BIOTIN
  16. SPIRIVA [Concomitant]
     Active Substance: TIOTROPIUM BROMIDE MONOHYDRATE
  17. PREDNISONE. [Concomitant]
     Active Substance: PREDNISONE
  18. PULMICORT TURBUHALER [Concomitant]
     Active Substance: BUDESONIDE
  19. METROPROLOL [Concomitant]
     Active Substance: METOPROLOL
  20. MAGNESIUM [Concomitant]
     Active Substance: MAGNESIUM
  21. VITAMIN C [Concomitant]
     Active Substance: ASCORBIC ACID
  22. VITAMIN D3 [Concomitant]
     Active Substance: CHOLECALCIFEROL
  23. ZINC. [Concomitant]
     Active Substance: ZINC

REACTIONS (3)
  - Pelvic pain [None]
  - Urinary tract infection [None]
  - Pelvic discomfort [None]

NARRATIVE: CASE EVENT DATE: 20180206
